FAERS Safety Report 5971490-8 (Version None)
Quarter: 2008Q4

REPORT INFORMATION
  Report Type: 
  Country: None (occurrence: None)
  Receive Date: 20081201
  Receipt Date: 20081126
  Transmission Date: 20090506
  Serious: Yes (Hospitalization)
  Sender: FDA-Public Use
  Company Number: US-BRISTOL-MYERS SQUIBB COMPANY-14421846

PATIENT
  Age: 53 Year
  Sex: Female
  Weight: 66 kg

DRUGS (7)
  1. PACLITAXEL [Suspect]
     Indication: BREAST CANCER METASTATIC
     Dosage: INITIATED ON 16NOV07. THERAPY DURATION=350 DAYS
     Route: 042
     Dates: start: 20081030, end: 20081030
  2. GEMZAR [Suspect]
     Indication: BREAST CANCER METASTATIC
     Dosage: STARTED ON 16-NOV-2007
     Route: 042
     Dates: start: 20081030, end: 20081030
  3. BEVACIZUMAB [Suspect]
     Indication: BREAST CANCER METASTATIC
     Dosage: INITIATED ON 16NOV07. THERAPY DURATION=350 DAYS
     Route: 042
     Dates: start: 20081030, end: 20081030
  4. HYDROCODONE BITARTRATE [Concomitant]
  5. LASIX [Concomitant]
  6. XANAX [Concomitant]
  7. COUMADIN [Concomitant]
     Dates: end: 20081104

REACTIONS (2)
  - CARDIOMYOPATHY [None]
  - DYSPNOEA [None]
